FAERS Safety Report 18867830 (Version 2)
Quarter: 2021Q1

REPORT INFORMATION
  Report Type: Report from Study
  Country: AE (occurrence: AE)
  Receive Date: 20210209
  Receipt Date: 20210210
  Transmission Date: 20210420
  Serious: No
  Sender: FDA-Public Use
  Company Number: AE-GLAXOSMITHKLINE-AE2021EME028569

PATIENT

DRUGS (1)
  1. BELIMUMAB [Suspect]
     Active Substance: BELIMUMAB
     Indication: ASTHMA
     Dosage: 200 MG, Z, ONCE WEEKLY
     Route: 058
     Dates: start: 20200831

REACTIONS (2)
  - Product use in unapproved indication [Unknown]
  - Immune system disorder [Unknown]
